FAERS Safety Report 7691019-6 (Version None)
Quarter: 2011Q3

REPORT INFORMATION
  Report Type: 
  Country: None (occurrence: None)
  Receive Date: 20110817
  Receipt Date: 20110817
  Transmission Date: 20111222
  Serious: No
  Sender: FDA-Public Use
  Company Number: None

PATIENT
  Age: 60 Year
  Sex: Male
  Weight: 57.1 kg

DRUGS (2)
  1. HEPARIN [Suspect]
     Indication: PROPHYLAXIS
     Dosage: 5000 UNITS TID SQ
     Route: 058
     Dates: start: 20110330, end: 20110405
  2. HEPARIN [Suspect]
     Indication: PROPHYLAXIS
     Dosage: 5000 UNITS TID SQ
     Route: 058
     Dates: start: 20110420, end: 20110501

REACTIONS (5)
  - RESPIRATORY FUME INHALATION DISORDER [None]
  - BRONCHITIS [None]
  - TREATMENT FAILURE [None]
  - DEEP VEIN THROMBOSIS [None]
  - CONDITION AGGRAVATED [None]
